FAERS Safety Report 8479096-6 (Version None)
Quarter: 2012Q2

REPORT INFORMATION
  Report Type: 
  Country: None (occurrence: None)
  Receive Date: 20120629
  Receipt Date: 20111017
  Transmission Date: 20120825
  Serious: Yes (Congenital Anomaly)
  Sender: FDA-Public Use
  Company Number: FR-ROCHE-1005239

PATIENT

DRUGS (6)
  1. CITALOPRAM HYDROBROMIDE [Suspect]
     Indication: DEPRESSION
     Route: 064
  2. PRAZEPAM [Suspect]
     Indication: DEPRESSION
     Route: 064
  3. EUPHYTOSE [Suspect]
     Indication: DEPRESSION
     Route: 064
  4. HUMIRA [Suspect]
     Indication: CROHN'S DISEASE
     Route: 064
  5. IMURAN [Suspect]
     Indication: CROHN'S DISEASE
     Route: 064
  6. CLONAZEPAM [Suspect]
     Indication: TEMPOROMANDIBULAR JOINT SYNDROME
     Route: 064

REACTIONS (3)
  - MENINGOCELE [None]
  - SPINA BIFIDA [None]
  - ARNOLD-CHIARI MALFORMATION [None]
